FAERS Safety Report 20584300 (Version 1)
Quarter: 2022Q1

REPORT INFORMATION
  Report Type: Spontaneous
  Country: CH (occurrence: CH)
  Receive Date: 20220311
  Receipt Date: 20220311
  Transmission Date: 20220423
  Serious: Yes (Other)
  Sender: FDA-Public Use
  Company Number: CH-TAKEDA-2022TUS014581

PATIENT
  Age: 75 Year
  Sex: Male

DRUGS (4)
  1. MESALAMINE [Suspect]
     Active Substance: MESALAMINE
     Indication: Colitis ulcerative
     Dosage: 2 GRAM, QD
     Route: 048
  2. MESALAMINE [Suspect]
     Active Substance: MESALAMINE
     Dosage: 1 GRAM, QD
     Route: 054
  3. MESALAMINE [Suspect]
     Active Substance: MESALAMINE
     Dosage: 1.5 GRAM, QD
     Route: 048
  4. MESALAMINE [Suspect]
     Active Substance: MESALAMINE
     Dosage: 500 MILLIGRAM, QD
     Route: 054

REACTIONS (6)
  - Drug reaction with eosinophilia and systemic symptoms [Recovered/Resolved]
  - Lupus-like syndrome [Recovered/Resolved]
  - Pneumonia [Unknown]
  - Pericardial effusion [Unknown]
  - Pericarditis [Unknown]
  - Nephritis [Unknown]
